FAERS Safety Report 11617283 (Version 1)
Quarter: 2015Q4

REPORT INFORMATION
  Report Type: Spontaneous
  Country: US (occurrence: US)
  Receive Date: 20151009
  Receipt Date: 20151009
  Transmission Date: 20160304
  Serious: Yes (Hospitalization)
  Sender: FDA-Public Use
  Company Number: US-TEVA-599881USA

PATIENT
  Age: 12 Year
  Sex: Male

DRUGS (4)
  1. GUANFACINE. [Suspect]
     Active Substance: GUANFACINE
     Indication: INTENTIONAL OVERDOSE
     Dosage: 2MG
     Route: 048
  2. RISPERIDONE. [Suspect]
     Active Substance: RISPERIDONE
     Dosage: 0.25MG COUPLE OF TABLETS
     Route: 048
  3. RISPERIDONE. [Suspect]
     Active Substance: RISPERIDONE
     Indication: INTENTIONAL OVERDOSE
     Dosage: 0.25MG
     Route: 048
  4. GUANFACINE. [Suspect]
     Active Substance: GUANFACINE
     Dosage: 2MG COUPLE OF TABLETS
     Route: 048

REACTIONS (4)
  - Bradycardia [Recovered/Resolved]
  - Agitation [Unknown]
  - Tachycardia [Unknown]
  - Intentional overdose [Recovering/Resolving]
